FAERS Safety Report 6450479-9 (Version None)
Quarter: 2009Q4

REPORT INFORMATION
  Report Type: 
  Country: None (occurrence: None)
  Receive Date: 20091120
  Receipt Date: 20091120
  Transmission Date: 20100525
  Serious: Yes (Hospitalization)
  Sender: FDA-Public Use
  Company Number: None

PATIENT

DRUGS (1)
  1. METOCLOPRAMIDE [Suspect]
     Indication: NAUSEA
     Dosage: 10 MG ONCE IV
     Route: 042
     Dates: start: 20090122, end: 20090123

REACTIONS (4)
  - DYSTONIA [None]
  - MUSCLE TIGHTNESS [None]
  - RESTLESSNESS [None]
  - SKIN WARM [None]
